FAERS Safety Report 10771502 (Version 1)
Quarter: 2015Q1

REPORT INFORMATION
  Report Type: Spontaneous
  Country: GB (occurrence: GB)
  Receive Date: 20150206
  Receipt Date: 20150206
  Transmission Date: 20150721
  Serious: Yes (Other)
  Sender: FDA-Public Use
  Company Number: GB-WATSON-2015-01252

PATIENT
  Age: 14 Year
  Sex: Female

DRUGS (4)
  1. FLUOXETINE [Suspect]
     Active Substance: FLUOXETINE\FLUOXETINE HYDROCHLORIDE
     Indication: DEPRESSION
     Dosage: 10 MG, UNK
     Route: 048
     Dates: start: 20140529, end: 20140612
  2. SODIUM PICOSULFATE [Concomitant]
     Active Substance: SODIUM PICOSULFATE
     Indication: CONSTIPATION
     Dosage: 20 ML, UNK
     Route: 048
  3. MOVICOL                            /01749801/ [Concomitant]
     Indication: CONSTIPATION
     Dosage: UNK. 2-4 SACHETS
     Route: 048
  4. MICROLAX                           /01109601/ [Concomitant]
     Indication: CONSTIPATION
     Dosage: UNK
     Route: 054

REACTIONS (4)
  - Vomiting [Recovering/Resolving]
  - Oropharyngeal pain [Recovered/Resolved]
  - Nausea [Recovered/Resolved]
  - Infection [Unknown]

NARRATIVE: CASE EVENT DATE: 20140531
